FAERS Safety Report 8534739-3 (Version None)
Quarter: 2012Q3

REPORT INFORMATION
  Report Type: 
  Country: None (occurrence: None)
  Receive Date: 20120724
  Receipt Date: 20120718
  Transmission Date: 20120928
  Serious: Yes (Other)
  Sender: FDA-Public Use
  Company Number: FR-GLAXOSMITHKLINE-B0815507A

PATIENT
  Sex: Male

DRUGS (3)
  1. REQUIP [Suspect]
     Indication: PARKINSON'S DISEASE
     Route: 048
     Dates: start: 20100801, end: 20120201
  2. AZILECT [Concomitant]
     Dosage: 1MG PER DAY
     Route: 065
     Dates: start: 20101201
  3. MODOPAR [Concomitant]
     Dosage: 500MG PER DAY
     Dates: start: 20120301

REACTIONS (6)
  - IMPULSE-CONTROL DISORDER [None]
  - SOMNOLENCE [None]
  - PSYCHOMOTOR HYPERACTIVITY [None]
  - HYPERSEXUALITY [None]
  - EATING DISORDER [None]
  - PATHOLOGICAL GAMBLING [None]
